FAERS Safety Report 23390721 (Version 1)
Quarter: 2024Q1

REPORT INFORMATION
  Report Type: Spontaneous
  Country: US (occurrence: US)
  Receive Date: 20240111
  Receipt Date: 20240111
  Transmission Date: 20240409
  Serious: No
  Sender: FDA-Public Use
  Company Number: US-HETERO-HET2024US00051

PATIENT
  Age: 56 Year
  Sex: Female
  Weight: 90.703 kg

DRUGS (1)
  1. LOSARTAN [Suspect]
     Active Substance: LOSARTAN
     Indication: Hypertension
     Dosage: 25 MILLIGRAM, QD
     Route: 048
     Dates: start: 20240104

REACTIONS (1)
  - Aphonia [Not Recovered/Not Resolved]

NARRATIVE: CASE EVENT DATE: 20240105
